FAERS Safety Report 14080204 (Version 1)
Quarter: 2017Q4

REPORT INFORMATION
  Report Type: Spontaneous
  Country: US (occurrence: US)
  Receive Date: 20171012
  Receipt Date: 20171012
  Transmission Date: 20180321
  Serious: No
  Sender: FDA-Public Use
  Company Number: US-MYLANLABS-2017M1032106

PATIENT
  Age: 60 Year
  Sex: Male
  Weight: 127 kg

DRUGS (1)
  1. CARBIDOPA AND LEVODOPA [Suspect]
     Active Substance: CARBIDOPA\LEVODOPA
     Indication: PARKINSON^S DISEASE
     Dosage: 1 DF, QID (25/100 MG)
     Route: 048
     Dates: start: 201701

REACTIONS (3)
  - Wrong technique in product usage process [Unknown]
  - Throat tightness [Unknown]
  - Product use complaint [Not Recovered/Not Resolved]

NARRATIVE: CASE EVENT DATE: 201701
